FAERS Safety Report 26200167 (Version 1)
Quarter: 2025Q4

REPORT INFORMATION
  Report Type: Spontaneous
  Country: GB (occurrence: GB)
  Receive Date: 20251225
  Receipt Date: 20251225
  Transmission Date: 20260118
  Serious: Yes (Disabling)
  Sender: MERZ
  Company Number: GB-MERZ PHARMACEUTICALS LLC-ACO_180113_2025

PATIENT
  Sex: Male

DRUGS (1)
  1. DALFAMPRIDINE [Suspect]
     Active Substance: DALFAMPRIDINE
     Indication: Multiple sclerosis
     Dosage: 10 MILLIGRAM, BID
     Route: 048

REACTIONS (3)
  - Bedridden [Unknown]
  - Mobility decreased [Unknown]
  - Product dose omission issue [Unknown]
